FAERS Safety Report 10983819 (Version 11)
Quarter: 2016Q3

REPORT INFORMATION
  Report Type: Spontaneous
  Country: DK (occurrence: DK)
  Receive Date: 20150403
  Receipt Date: 20160705
  Transmission Date: 20161109
  Serious: Yes (Other)
  Sender: FDA-Public Use
  Company Number: DK-BRACCO-000169

PATIENT
  Age: 55 Year
  Sex: Female
  Weight: 69 kg

DRUGS (5)
  1. MULTIHANCE [Suspect]
     Active Substance: GADOBENATE DIMEGLUMINE
     Indication: NUCLEAR MAGNETIC RESONANCE IMAGING
     Dosage: DOSIS: 7ML, STRENGHT: 334 MG/ML (0.5 MMOL/ML)
     Route: 042
     Dates: start: 20150217
  2. AMLODIPIN [Concomitant]
     Active Substance: AMLODIPINE BESYLATE
     Indication: HYPERTENSION
  3. ATORVASTATIN [Concomitant]
     Active Substance: ATORVASTATIN
     Indication: HYPERCHOLESTEROLAEMIA
     Dates: start: 201411
  4. VAGIFEM [Concomitant]
     Active Substance: ESTRADIOL
     Indication: VULVOVAGINAL DRYNESS
  5. SIMVASTATIN. [Concomitant]
     Active Substance: SIMVASTATIN
     Dates: start: 2009, end: 2014

REACTIONS (30)
  - Feeling hot [Recovered/Resolved]
  - Oral mucosal eruption [Unknown]
  - Erythema [Recovered/Resolved]
  - Hypoaesthesia [Unknown]
  - Muscle spasms [Unknown]
  - Dysphagia [Unknown]
  - Weight decreased [Unknown]
  - Nausea [Unknown]
  - Skin texture abnormal [Not Recovered/Not Resolved]
  - Skin reaction [Unknown]
  - Dry mouth [Unknown]
  - Pain of skin [Unknown]
  - Pain [Unknown]
  - Erythema [Unknown]
  - Vaginal haemorrhage [Unknown]
  - Dizziness [Unknown]
  - Muscle injury [Not Recovered/Not Resolved]
  - Urticaria [Recovered/Resolved]
  - Urticaria [Unknown]
  - Gingival injury [Unknown]
  - Hypersensitivity [Unknown]
  - Skin fibrosis [Unknown]
  - Limb discomfort [Unknown]
  - Dehydration [Unknown]
  - Peripheral swelling [Unknown]
  - Skin discolouration [Unknown]
  - Dry skin [Unknown]
  - Inappropriate schedule of drug administration [Unknown]
  - Musculoskeletal stiffness [Unknown]
  - Rash papular [Unknown]

NARRATIVE: CASE EVENT DATE: 20150217
